FAERS Safety Report 24040439 (Version 1)
Quarter: 2024Q3

REPORT INFORMATION
  Report Type: Spontaneous
  Country: US (occurrence: US)
  Receive Date: 20240702
  Receipt Date: 20240702
  Transmission Date: 20241016
  Serious: No
  Sender: PERRIGO
  Company Number: US-PERRIGO-23US013323

PATIENT
  Sex: Female

DRUGS (2)
  1. MICONAZOLE 1 [Suspect]
     Active Substance: MICONAZOLE NITRATE
     Indication: Infection
     Dosage: UNKNOWN, UNKNOWN
     Route: 067
  2. MICONAZOLE 1 [Suspect]
     Active Substance: MICONAZOLE NITRATE
     Indication: Infection
     Dosage: UNKNOWN, UNKNOWN
     Route: 065

REACTIONS (1)
  - Condition aggravated [Unknown]
